FAERS Safety Report 7589748-8 (Version None)
Quarter: 2011Q2

REPORT INFORMATION
  Report Type: 
  Country: None (occurrence: None)
  Receive Date: 20110627
  Receipt Date: 20110616
  Transmission Date: 20111010
  Serious: Yes (Death)
  Sender: FDA-Public Use
  Company Number: UTC-007972

PATIENT
  Age: 55 Year
  Sex: Female
  Weight: 55.3 kg

DRUGS (1)
  1. TYVASO [Suspect]
     Indication: PULMONARY ARTERIAL HYPERTENSION
     Dosage: 18-54 MICROGRAMS, INHALATION
     Route: 055
     Dates: start: 20110518

REACTIONS (1)
  - COUGH [None]
